FAERS Safety Report 19735592 (Version 1)
Quarter: 2021Q3

REPORT INFORMATION
  Report Type: Spontaneous
  Country: JP (occurrence: JP)
  Receive Date: 20210823
  Receipt Date: 20210823
  Transmission Date: 20211014
  Serious: No
  Sender: FDA-Public Use
  Company Number: JP-LUPIN PHARMACEUTICALS INC.-2021-15288

PATIENT
  Sex: Male

DRUGS (6)
  1. NADIFLOXACIN [Suspect]
     Active Substance: NADIFLOXACIN
     Indication: HIDRADENITIS
     Dosage: UNK
     Route: 061
  2. PREDNISOLONE. [Suspect]
     Active Substance: PREDNISOLONE
     Indication: HIDRADENITIS
     Dosage: 10 MILLIGRAM, QD
     Route: 048
  3. ADALIMUMAB [Concomitant]
     Active Substance: ADALIMUMAB
     Indication: HIDRADENITIS
     Dosage: UNK
     Route: 065
  4. CYCLOSPORINE. [Suspect]
     Active Substance: CYCLOSPORINE
     Indication: HIDRADENITIS
     Dosage: 100 MILLIGRAM, QD
     Route: 065
  5. MINOCYCLINE [Suspect]
     Active Substance: MINOCYCLINE HYDROCHLORIDE
     Indication: HIDRADENITIS
     Dosage: 200 MILLIGRAM, QD
     Route: 048
  6. CYCLOSPORINE. [Suspect]
     Active Substance: CYCLOSPORINE
     Dosage: 150 MILLIGRAM, QD
     Route: 065

REACTIONS (2)
  - Drug ineffective for unapproved indication [Unknown]
  - Off label use [None]
